FAERS Safety Report 6498878-3 (Version None)
Quarter: 2009Q4

REPORT INFORMATION
  Report Type: 
  Country: None (occurrence: None)
  Receive Date: 20091127
  Receipt Date: 20081215
  Transmission Date: 20100525
  Serious: Yes (Other)
  Sender: FDA-Public Use
  Company Number: 281727

PATIENT
  Age: 80 Year
  Sex: Female

DRUGS (2)
  1. NOVOLOG [Suspect]
     Indication: TYPE 1 DIABETES MELLITUS
     Dosage: UNK, QD, SUBCUTANEOUS
     Route: 058
  2. LANTUS (INSULIN GLARGINE) SUSPENSION FOR INJECTION [Concomitant]

REACTIONS (1)
  - BLOOD GLUCOSE INCREASED [None]
